FAERS Safety Report 5867586-1 (Version None)
Quarter: 2008Q3

REPORT INFORMATION
  Report Type: 
  Country: None (occurrence: None)
  Receive Date: 20080902
  Receipt Date: 20071113
  Transmission Date: 20090109
  Serious: No
  Sender: FDA-Public Use
  Company Number: US-ABBOTT-07P-163-0425461-00

PATIENT
  Age: 23 Year
  Sex: Male

DRUGS (4)
  1. DEPAKOTE ER [Suspect]
     Indication: BIPOLAR I DISORDER
     Route: 048
     Dates: start: 20071101
  2. DEPAKOTE ER [Suspect]
     Route: 048
     Dates: start: 20070905, end: 20071101
  3. DEPAKOTE ER [Suspect]
     Route: 048
     Dates: start: 20070901, end: 20070905
  4. ZIPRASIDONE HYDROCHLORIDE [Concomitant]
     Indication: DEPRESSION
     Route: 048

REACTIONS (4)
  - DYSARTHRIA [None]
  - DYSGRAPHIA [None]
  - SALIVARY HYPERSECRETION [None]
  - TREMOR [None]
